FAERS Safety Report 6612093-1 (Version None)
Quarter: 2010Q1

REPORT INFORMATION
  Report Type: 
  Country: None (occurrence: None)
  Receive Date: 20100303
  Receipt Date: 20100301
  Transmission Date: 20100710
  Serious: Yes (Hospitalization)
  Sender: FDA-Public Use
  Company Number: GXKR2010DE02359

PATIENT
  Age: 67 Year
  Sex: Male
  Weight: 78 kg

DRUGS (7)
  1. ACETAMINOPHEN [Suspect]
     Indication: BRONCHITIS
     Dosage: 1000 MG, QD
     Route: 048
     Dates: start: 20091227, end: 20100102
  2. CLARITHROMYCIN [Suspect]
     Indication: BRONCHITIS
     Dosage: 500 MG, QD
     Route: 048
     Dates: start: 20091227, end: 20100102
  3. TAMSULOSIN HCL [Concomitant]
  4. NIFURANTIN [Concomitant]
     Indication: CYSTITIS NONINFECTIVE
  5. KARVEZIDE [Concomitant]
  6. AARANE N [Concomitant]
  7. VIANI [Concomitant]

REACTIONS (1)
  - HEPATIC FAILURE [None]
